FAERS Safety Report 24761123 (Version 1)
Quarter: 2024Q4

REPORT INFORMATION
  Report Type: Spontaneous
  Country: US (occurrence: US)
  Receive Date: 20241220
  Receipt Date: 20241220
  Transmission Date: 20250115
  Serious: No
  Sender: MERCK
  Company Number: US-009507513-2412USA003083

PATIENT
  Age: 54 Year
  Sex: Male

DRUGS (4)
  1. KEYTRUDA [Suspect]
     Active Substance: PEMBROLIZUMAB
     Indication: Metastatic malignant melanoma
     Dosage: 200 MILLIGRAM, Q3W
     Route: 042
     Dates: start: 202301
  2. KEYTRUDA [Suspect]
     Active Substance: PEMBROLIZUMAB
     Indication: Malignant neoplasm progression
  3. TEMODAR [Suspect]
     Active Substance: TEMOZOLOMIDE
     Indication: Metastatic malignant melanoma
     Dosage: 150 MILLIGRAM/SQ. METER,  FOR SIX 5/28-DAY CYCLES.
     Route: 048
     Dates: start: 202401
  4. TEMODAR [Suspect]
     Active Substance: TEMOZOLOMIDE
     Indication: Malignant neoplasm progression

REACTIONS (1)
  - Off label use [Unknown]
